FAERS Safety Report 6614600-1 (Version None)
Quarter: 2010Q1

REPORT INFORMATION
  Report Type: 
  Country: None (occurrence: None)
  Receive Date: 20100226
  Receipt Date: 20100218
  Transmission Date: 20100710
  Serious: Yes (Death)
  Sender: FDA-Public Use
  Company Number: 20108218

PATIENT

DRUGS (1)
  1. LIORESAL [Suspect]
     Indication: MUSCLE SPASTICITY
     Dosage: INTRATHECAL
     Route: 037

REACTIONS (2)
  - DEVICE MALFUNCTION [None]
  - MEDICAL DEVICE COMPLICATION [None]
